FAERS Safety Report 10992715 (Version 3)
Quarter: 2015Q2

REPORT INFORMATION
  Report Type: Spontaneous
  Country: US (occurrence: US)
  Receive Date: 20150406
  Receipt Date: 20150529
  Transmission Date: 20150821
  Serious: Yes (Death, Hospitalization, Other)
  Sender: FDA-Public Use
  Company Number: US-ASTELLAS-2015US010890

PATIENT
  Age: 74 Year
  Sex: Male

DRUGS (1)
  1. XTANDI [Suspect]
     Active Substance: ENZALUTAMIDE
     Indication: PROSTATE CANCER
     Route: 048
     Dates: start: 20150116, end: 20150325

REACTIONS (9)
  - Acute respiratory distress syndrome [Unknown]
  - Sepsis [Unknown]
  - Urinary tract infection enterococcal [Unknown]
  - Acute kidney injury [Recovered/Resolved]
  - Hypotension [Recovering/Resolving]
  - Malignant neoplasm progression [Fatal]
  - Hypernatraemia [Unknown]
  - Pneumonia [Not Recovered/Not Resolved]
  - Pulmonary oedema [Unknown]

NARRATIVE: CASE EVENT DATE: 20150318
